FAERS Safety Report 5472835-8 (Version None)
Quarter: 2007Q4

REPORT INFORMATION
  Report Type: 
  Country: None (occurrence: None)
  Receive Date: 20071001
  Receipt Date: 20061121
  Transmission Date: 20080405
  Serious: No
  Sender: FDA-Public Use
  Company Number: US-ASTRAZENECA-2006UW25859

PATIENT
  Age: 73 Year
  Sex: Female
  Weight: 59.9 kg

DRUGS (1)
  1. ARIMIDEX [Suspect]
     Indication: BREAST CANCER
     Route: 048

REACTIONS (4)
  - ALOPECIA [None]
  - HOT FLUSH [None]
  - MUSCLE SPASMS [None]
  - NAUSEA [None]
